FAERS Safety Report 9009753 (Version 7)
Quarter: 2014Q1

REPORT INFORMATION
  Report Type: Spontaneous
  Country: US (occurrence: US)
  Receive Date: 20130110
  Receipt Date: 20140122
  Transmission Date: 20141002
  Serious: Yes (Hospitalization, Other)
  Sender: FDA-Public Use
  Company Number: US-009507513-1301USA002707

PATIENT
  Sex: Female

DRUGS (12)
  1. FOSAMAX [Suspect]
     Indication: OSTEOPOROSIS
     Dosage: 10 MG, QD
     Route: 048
     Dates: start: 1998, end: 200110
  2. FOSAMAX [Suspect]
     Dosage: 70 MG, QD
     Route: 048
     Dates: start: 200111, end: 200606
  3. FOSAMAX [Suspect]
     Dosage: 70 MG, QW
     Route: 048
     Dates: end: 20110321
  4. FOSAMAX PLUS D [Suspect]
     Indication: OSTEOPOROSIS
     Dosage: 70MG-2800, QD
     Route: 048
     Dates: start: 20060708, end: 2011
  5. ALENDRONATE SODIUM [Suspect]
     Dosage: 70 MG, QW
     Route: 048
  6. PREVACID [Concomitant]
     Dosage: UNK
     Dates: start: 200312
  7. PRILOSEC [Concomitant]
     Dosage: UNK
     Dates: start: 2000
  8. PROTONIX [Concomitant]
     Dosage: UNK
     Dates: start: 2000
  9. VITAMIN D (UNSPECIFIED) [Concomitant]
     Indication: OSTEOPOROSIS
     Dosage: 1000 IU, QD
     Dates: start: 1990
  10. TETANUS TOXOID [Concomitant]
     Dosage: UNK
     Dates: start: 2006
  11. PNEUMOCOCCAL VACCINE (UNSPECIFIED) [Concomitant]
     Dosage: UNK
     Dates: start: 2006
  12. CALCIUM (UNSPECIFIED) [Concomitant]
     Indication: OSTEOPOROSIS

REACTIONS (50)
  - Femur fracture [Recovering/Resolving]
  - Intramedullary rod insertion [Unknown]
  - Femur fracture [Recovering/Resolving]
  - Intramedullary rod insertion [Unknown]
  - Breast cancer [Unknown]
  - Subdural haematoma evacuation [Unknown]
  - Cholecystectomy [Unknown]
  - Deep vein thrombosis [Unknown]
  - Deep vein thrombosis [Unknown]
  - Fall [Unknown]
  - Hypothyroidism [Unknown]
  - Head injury [Unknown]
  - Adverse event [Unknown]
  - Hypertension [Unknown]
  - Adverse event [Unknown]
  - Tremor [Unknown]
  - Depression [Unknown]
  - Pain [Unknown]
  - Hyperlipidaemia [Unknown]
  - Dizziness postural [Unknown]
  - Amnesia [Unknown]
  - Cognitive disorder [Unknown]
  - Neuropathy peripheral [Unknown]
  - VIIth nerve paralysis [Unknown]
  - Syncope [Unknown]
  - Osteoarthritis [Unknown]
  - Cystopexy [Unknown]
  - Cataract operation [Unknown]
  - Hysterectomy [Unknown]
  - Uterine haemorrhage [Unknown]
  - Sinus headache [Unknown]
  - Varicose vein [Unknown]
  - Inappropriate schedule of drug administration [Unknown]
  - Cardiac failure congestive [Unknown]
  - Anticoagulant therapy [Unknown]
  - Peptic ulcer [Unknown]
  - Haemoglobin decreased [Unknown]
  - Angiopathy [Unknown]
  - Cardiac disorder [Unknown]
  - Exostosis [Unknown]
  - Meningioma [Unknown]
  - Swelling [Unknown]
  - Malignant breast lump removal [Unknown]
  - Radiotherapy [Unknown]
  - Ankle operation [Unknown]
  - Pyrexia [Recovered/Resolved]
  - Vertigo [Unknown]
  - Oedema peripheral [Unknown]
  - Gastritis [Unknown]
  - Gastrooesophageal reflux disease [Unknown]
